FAERS Safety Report 17136408 (Version 1)
Quarter: 2019Q4

REPORT INFORMATION
  Report Type: Spontaneous
  Country: US (occurrence: US)
  Receive Date: 20191210
  Receipt Date: 20191210
  Transmission Date: 20200122
  Serious: No
  Sender: FDA-Public Use
  Company Number: US-BAYER-2019-222873

PATIENT
  Sex: Female

DRUGS (1)
  1. MIRALAX [Suspect]
     Active Substance: POLYETHYLENE GLYCOL 3350
     Dosage: FILLED TO WHITE SECTION IN CAP DOSE
     Route: 048
     Dates: end: 20191209

REACTIONS (3)
  - Dry mouth [Unknown]
  - Poor quality sleep [Unknown]
  - Drug ineffective [Unknown]
